FAERS Safety Report 19794284 (Version 1)
Quarter: 2021Q3

REPORT INFORMATION
  Report Type: Spontaneous
  Country: IT (occurrence: IT)
  Receive Date: 20210906
  Receipt Date: 20210906
  Transmission Date: 20211014
  Serious: Yes (Life-Threatening)
  Sender: FDA-Public Use
  Company Number: IT-ASTRAZENECA-2021A710782

PATIENT
  Age: 54 Year
  Sex: Female

DRUGS (7)
  1. TAVOR (LORAZEPAM) [Suspect]
     Active Substance: LORAZEPAM
     Dosage: 1.0DF UNKNOWN
     Route: 048
     Dates: start: 20210829, end: 20210829
  2. SEROQUEL [Suspect]
     Active Substance: QUETIAPINE FUMARATE
     Dosage: 1.0DF UNKNOWN
     Route: 048
     Dates: start: 20210829, end: 20210829
  3. EN [Suspect]
     Active Substance: DELORAZEPAM
     Dosage: 1.0DF UNKNOWN
     Route: 048
     Dates: start: 20210829, end: 20210829
  4. LYRICA [Suspect]
     Active Substance: PREGABALIN
     Dosage: 4.0DF UNKNOWN
     Route: 048
     Dates: start: 20210829, end: 20210829
  5. HALCION [Suspect]
     Active Substance: TRIAZOLAM
     Dosage: 10.0DF UNKNOWN
     Route: 048
     Dates: start: 20210829, end: 20210829
  6. SEREUPIN [Suspect]
     Active Substance: PAROXETINE HYDROCHLORIDE
     Dosage: 1.0DF UNKNOWN
     Route: 048
     Dates: start: 20210829, end: 20210829
  7. LAMICTAL [Suspect]
     Active Substance: LAMOTRIGINE
     Dosage: 1.0DF UNKNOWN
     Route: 048
     Dates: start: 20210829, end: 20210829

REACTIONS (3)
  - Intentional self-injury [Unknown]
  - Drug abuse [Unknown]
  - Sopor [Unknown]

NARRATIVE: CASE EVENT DATE: 20210829
